FAERS Safety Report 10231444 (Version 1)
Quarter: 2014Q2

REPORT INFORMATION
  Report Type: Spontaneous
  Country: CA (occurrence: CA)
  Receive Date: 20140611
  Receipt Date: 20140611
  Transmission Date: 20141212
  Serious: Yes (Other)
  Sender: FDA-Public Use
  Company Number: CA-ACTAVIS-2014-12830

PATIENT
  Sex: Male

DRUGS (1)
  1. OXYCODONE (UNKNOWN) [Suspect]
     Indication: PAIN
     Dosage: UNKNOWN
     Route: 065

REACTIONS (6)
  - Euphoric mood [Unknown]
  - Coordination abnormal [Unknown]
  - Derealisation [Unknown]
  - Irritability [Unknown]
  - Impulse-control disorder [Unknown]
  - Headache [Unknown]
